FAERS Safety Report 25438054 (Version 1)
Quarter: 2025Q2

REPORT INFORMATION
  Report Type: Spontaneous
  Country: CH (occurrence: CH)
  Receive Date: 20250616
  Receipt Date: 20250616
  Transmission Date: 20250717
  Serious: Yes (Hospitalization, Other)
  Sender: ROCHE
  Company Number: CH-ROCHE-10000309528

PATIENT
  Age: 23 Year
  Sex: Female
  Weight: 65 kg

DRUGS (2)
  1. RITUXIMAB [Suspect]
     Active Substance: RITUXIMAB
     Indication: Myelin oligodendrocyte glycoprotein antibody-associated disease
     Dosage: MAINTENANCE DOSE
     Route: 042
  2. RITUXIMAB [Suspect]
     Active Substance: RITUXIMAB
     Dosage: INDUCTION DOSE
     Route: 042

REACTIONS (6)
  - Upper respiratory tract infection [Unknown]
  - COVID-19 [Unknown]
  - Respiratory tract infection [Unknown]
  - Pneumonia mycoplasmal [Unknown]
  - Pneumonia streptococcal [Unknown]
  - Immunoglobulins decreased [Unknown]
